FAERS Safety Report 7648699-0 (Version None)
Quarter: 2011Q3

REPORT INFORMATION
  Report Type: 
  Country: None (occurrence: None)
  Receive Date: 20110801
  Receipt Date: 20110722
  Transmission Date: 20111222
  Serious: Yes (Hospitalization, Other)
  Sender: FDA-Public Use
  Company Number: PHFR2011GB04236

PATIENT
  Sex: Female

DRUGS (1)
  1. CLOZAPINE [Suspect]
     Indication: SCHIZOPHRENIA
     Dosage: 150 MG, UNK
     Route: 048
     Dates: start: 20110705

REACTIONS (7)
  - DIVERTICULITIS [None]
  - NAUSEA [None]
  - ABDOMINAL PAIN UPPER [None]
  - TACHYCARDIA [None]
  - CONSTIPATION [None]
  - CHOLELITHIASIS [None]
  - BLOOD AMYLASE INCREASED [None]
